FAERS Safety Report 17827474 (Version 1)
Quarter: 2020Q2

REPORT INFORMATION
  Report Type: Spontaneous
  Country: AU (occurrence: AU)
  Receive Date: 20200527
  Receipt Date: 20200527
  Transmission Date: 20200714
  Serious: Yes (Hospitalization, Disabling)
  Sender: FDA-Public Use
  Company Number: AU-ASTRAZENECA-2020SE67558

PATIENT
  Sex: Male

DRUGS (3)
  1. ARIPIPRAZOLE. [Suspect]
     Active Substance: ARIPIPRAZOLE
     Route: 065
  2. QUETIAPINE. [Suspect]
     Active Substance: QUETIAPINE
     Route: 048
  3. CLOPINE [Suspect]
     Active Substance: CLOZAPINE
     Route: 065

REACTIONS (5)
  - Rebound psychosis [Unknown]
  - Salivary hypersecretion [Unknown]
  - Sedation [Unknown]
  - Neutropenia [Unknown]
  - Tardive dyskinesia [Unknown]
